FAERS Safety Report 11168117 (Version 1)
Quarter: 2015Q2

REPORT INFORMATION
  Report Type: Spontaneous
  Country: US (occurrence: None)
  Receive Date: 20150604
  Receipt Date: 20150604
  Transmission Date: 20150821
  Serious: No
  Sender: FDA-Public Use
  Company Number: None

PATIENT
  Age: 40 Year
  Sex: Female
  Weight: 83.92 kg

DRUGS (7)
  1. NABUMETONE 500MG 2 TABS DAILY - FIBROMYALGIA - NDC #68462-0358-01 [Suspect]
     Active Substance: NABUMETONE
     Indication: KYPHOSIS
     Dosage: 500
     Route: 048
     Dates: start: 20150603, end: 20150603
  2. NABUMETONE 500MG 2 TABS DAILY - FIBROMYALGIA - NDC #68462-0358-01 [Suspect]
     Active Substance: NABUMETONE
     Indication: SPINAL COLUMN STENOSIS
     Dosage: 500
     Route: 048
     Dates: start: 20150603, end: 20150603
  3. CYCLOBENZAPRINE (FLEXIRIL) [Concomitant]
  4. METHTYLPREDNISOLONE [Concomitant]
  5. CYMBALTA [Concomitant]
     Active Substance: DULOXETINE HYDROCHLORIDE
  6. NABUMETONE 500MG 2 TABS DAILY - FIBROMYALGIA - NDC #68462-0358-01 [Suspect]
     Active Substance: NABUMETONE
     Indication: CERVICAL RADICULOPATHY
     Dosage: 500
     Route: 048
     Dates: start: 20150603, end: 20150603
  7. NABUMETONE 500MG 2 TABS DAILY - FIBROMYALGIA - NDC #68462-0358-01 [Suspect]
     Active Substance: NABUMETONE
     Indication: AUTOIMMUNE DISORDER
     Dosage: 500
     Route: 048
     Dates: start: 20150603, end: 20150603

REACTIONS (3)
  - Sedation [None]
  - Feeling abnormal [None]
  - Aphasia [None]

NARRATIVE: CASE EVENT DATE: 20150603
